FAERS Safety Report 7403066-X (Version None)
Quarter: 2011Q2

REPORT INFORMATION
  Report Type: 
  Country: None (occurrence: None)
  Receive Date: 20110408
  Receipt Date: 20110302
  Transmission Date: 20111010
  Serious: No
  Sender: FDA-Public Use
  Company Number: US-NOVEN-11US001915

PATIENT
  Sex: Male

DRUGS (2)
  1. FENTANYL [Suspect]
     Indication: PAIN
     Dosage: 75 UG, UNKNOWN
     Route: 062
  2. OXYCONTIN [Concomitant]
     Indication: PAIN
     Dosage: 20 MG, Q 12HR.
     Route: 048
     Dates: start: 20110226

REACTIONS (2)
  - ENERGY INCREASED [None]
  - INSOMNIA [None]
